FAERS Safety Report 25786942 (Version 1)
Quarter: 2025Q3

REPORT INFORMATION
  Report Type: Spontaneous
  Country: US (occurrence: US)
  Receive Date: 20250910
  Receipt Date: 20250910
  Transmission Date: 20251021
  Serious: No
  Sender: ANI
  Company Number: US-ANIPHARMA-2025-US-010874

PATIENT
  Age: 60 Year
  Sex: Female
  Weight: 92.99 kg

DRUGS (17)
  1. CORTICOTROPIN [Suspect]
     Active Substance: CORTICOTROPIN
     Indication: Multiple sclerosis
     Route: 058
     Dates: start: 20250216
  2. GABAPENTIN [Concomitant]
     Active Substance: GABAPENTIN
  3. HUMALOG PEN [Concomitant]
     Active Substance: INSULIN LISPRO
  4. LANTUS [Concomitant]
     Active Substance: INSULIN GLARGINE
  5. LISINOPRIL [Concomitant]
     Active Substance: LISINOPRIL
  6. OXYCODONE [Concomitant]
     Active Substance: OXYCODONE
  7. ENTRESTO [Concomitant]
     Active Substance: SACUBITRIL\VALSARTAN
  8. TOPIRAMATE [Concomitant]
     Active Substance: TOPIRAMATE
  9. ACYCLOVIR [Concomitant]
     Active Substance: ACYCLOVIR
  10. ATORVASTATIN [Concomitant]
     Active Substance: ATORVASTATIN
  11. SYMBICORT [Concomitant]
     Active Substance: BUDESONIDE\FORMOTEROL FUMARATE DIHYDRATE
  12. VITAMIN D3 [Concomitant]
     Active Substance: CHOLECALCIFEROL
  13. PLAVIX [Concomitant]
     Active Substance: CLOPIDOGREL BISULFATE
  14. DOXYCYCLINE [Concomitant]
     Active Substance: DOXYCYCLINE
  15. FERROUS SULFATE [Concomitant]
     Active Substance: FERROUS SULFATE
  16. LASIX [Concomitant]
     Active Substance: FUROSEMIDE
  17. PROZAC [Concomitant]
     Active Substance: FLUOXETINE HYDROCHLORIDE

REACTIONS (2)
  - Blood potassium decreased [Not Recovered/Not Resolved]
  - Contraindicated product administered [Not Recovered/Not Resolved]

NARRATIVE: CASE EVENT DATE: 20250216
